FAERS Safety Report 11904435 (Version 1)
Quarter: 2016Q1

REPORT INFORMATION
  Report Type: Spontaneous
  Country: US (occurrence: US)
  Receive Date: 20160108
  Receipt Date: 20160108
  Transmission Date: 20160526
  Serious: No
  Sender: FDA-Public Use
  Company Number: US-ROCHE-1626816

PATIENT
  Age: 63 Year
  Sex: Female

DRUGS (2)
  1. BALSALAZIDE [Concomitant]
     Active Substance: BALSALAZIDE
     Indication: COLITIS ULCERATIVE
  2. RITUXAN [Suspect]
     Active Substance: RITUXIMAB
     Indication: RHEUMATOID ARTHRITIS
     Dosage: EVERY 5-6 MONTHS
     Route: 065
     Dates: start: 200901

REACTIONS (1)
  - Colitis ulcerative [Recovering/Resolving]

NARRATIVE: CASE EVENT DATE: 201012
